FAERS Safety Report 9170156 (Version 1)
Quarter: 2013Q1

REPORT INFORMATION
  Report Type: Spontaneous
  Country: GB (occurrence: GB)
  Receive Date: 20130319
  Receipt Date: 20130319
  Transmission Date: 20140127
  Serious: Yes (Other)
  Sender: FDA-Public Use
  Company Number: PHFR2012GB006511

PATIENT
  Age: 47 Year
  Sex: Female

DRUGS (4)
  1. CLOZARIL [Suspect]
     Indication: SCHIZOPHRENIA
     Dosage: 200 MG,
     Route: 048
     Dates: start: 20121015, end: 20121115
  2. VENLAFAXIN [Concomitant]
     Indication: DEPRESSED MOOD
     Dosage: 75 MG
     Route: 048
     Dates: start: 20101126
  3. VENLAFAXIN [Concomitant]
     Dosage: 225.5 MG
     Route: 048
     Dates: start: 20130104
  4. AMISULPRIDE [Concomitant]
     Indication: PSYCHOTIC DISORDER
     Dosage: 200 MG, BID
     Dates: start: 20130110

REACTIONS (7)
  - C-reactive protein increased [Unknown]
  - Hepatic failure [Recovered/Resolved]
  - Hepatitis acute [Recovered/Resolved]
  - Drug-induced liver injury [Recovered/Resolved]
  - Blood alkaline phosphatase increased [Unknown]
  - Blood albumin decreased [Unknown]
  - Alanine aminotransferase increased [Unknown]
